FAERS Safety Report 6264670-8 (Version None)
Quarter: 2009Q3

REPORT INFORMATION
  Report Type: 
  Country: None (occurrence: None)
  Receive Date: 20090710
  Receipt Date: 20090702
  Transmission Date: 20100115
  Serious: Yes (Other)
  Sender: FDA-Public Use
  Company Number: PHHY2009MX25431

PATIENT
  Age: 6 Year
  Sex: Male

DRUGS (2)
  1. TEGRETOL [Suspect]
     Indication: HYDROCEPHALUS
     Dosage: 5 ML, QD
     Route: 048
     Dates: start: 20070101, end: 20090525
  2. KEPPRA [Concomitant]
     Indication: CONVULSION
     Dosage: 1 TAB DAILY
     Dates: start: 20080501

REACTIONS (4)
  - ABDOMINAL PAIN [None]
  - CONVULSION [None]
  - PHARYNGITIS [None]
  - PYREXIA [None]
